FAERS Safety Report 17014916 (Version 1)
Quarter: 2019Q4

REPORT INFORMATION
  Report Type: Spontaneous
  Country: US (occurrence: US)
  Receive Date: 20191002
  Receipt Date: 20191002
  Transmission Date: 20200122
  Serious: Yes (Hospitalization)
  Sender: FDA-Public Use
  Company Number: None

PATIENT
  Age: 60 Year
  Sex: Male

DRUGS (1)
  1. IOHEXOL [Suspect]
     Active Substance: IOHEXOL
     Indication: CONTRAST MEDIA DEPOSITION
     Route: 042
     Dates: start: 20190916, end: 20190916

REACTIONS (2)
  - Procedural hypotension [None]
  - Acute kidney injury [None]

NARRATIVE: CASE EVENT DATE: 20190919
